FAERS Safety Report 24580695 (Version 1)
Quarter: 2024Q4

REPORT INFORMATION
  Report Type: Spontaneous
  Country: US (occurrence: US)
  Receive Date: 20241105
  Receipt Date: 20241105
  Transmission Date: 20250114
  Serious: No
  Sender: BRISTOL-MYERS SQUIBB COMPANY
  Company Number: US-BRISTOL-MYERS SQUIBB COMPANY-2024-172534

PATIENT
  Age: 68 Year
  Sex: Male
  Weight: 114.31 kg

DRUGS (1)
  1. POMALYST [Suspect]
     Active Substance: POMALIDOMIDE
     Indication: Plasma cell myeloma
     Dosage: ONCE DAILY
     Route: 048

REACTIONS (3)
  - Muscle spasms [Unknown]
  - Glossitis [Unknown]
  - Tongue dry [Unknown]

NARRATIVE: CASE EVENT DATE: 20241001
